FAERS Safety Report 10682838 (Version 1)
Quarter: 2014Q4

REPORT INFORMATION
  Report Type: Other
  Country: FR (occurrence: FR)
  Receive Date: 20141230
  Receipt Date: 20141230
  Transmission Date: 20150529
  Serious: Yes (Hospitalization)
  Sender: FDA-Public Use
  Company Number: FR-MYLANLABS-2014M1014793

PATIENT

DRUGS (5)
  1. VITAMIN D3 [Suspect]
     Active Substance: CHOLECALCIFEROL
     Indication: PRODUCT USED FOR UNKNOWN INDICATION
     Dosage: 0.5 DF, QOD
     Dates: start: 20130417
  2. CLOZAPINE MYLAN 25 MG COMPRIM? S?CABLE [Suspect]
     Active Substance: CLOZAPINE
     Indication: DEMENTIA WITH LEWY BODIES
     Dosage: 1 DF, TID
     Dates: start: 20121217
  3. SERESTA [Suspect]
     Active Substance: OXAZEPAM
     Indication: PRODUCT USED FOR UNKNOWN INDICATION
  4. MIRTAZAPINE BLUEFISH [Concomitant]
     Indication: PRODUCT USED FOR UNKNOWN INDICATION
  5. METFORMINE ARROW [Concomitant]
     Indication: PRODUCT USED FOR UNKNOWN INDICATION
     Dosage: 1 DF, BID
     Dates: start: 20140403

REACTIONS (2)
  - Pericardial effusion [Not Recovered/Not Resolved]
  - Atrial fibrillation [Not Recovered/Not Resolved]

NARRATIVE: CASE EVENT DATE: 20141118
